FAERS Safety Report 14963137 (Version 2)
Quarter: 2024Q4

REPORT INFORMATION
  Report Type: Spontaneous
  Country: US (occurrence: US)
  Receive Date: 20180601
  Receipt Date: 20241218
  Transmission Date: 20250114
  Serious: Yes (Other)
  Sender: MERCK
  Company Number: US-009507513-1805USA013358

PATIENT

DRUGS (2)
  1. BRIDION [Suspect]
     Active Substance: SUGAMMADEX
     Indication: Neuromuscular blockade reversal
     Route: 042
  2. ZEMURON [Concomitant]
     Active Substance: ROCURONIUM BROMIDE

REACTIONS (1)
  - Bradycardia [Recovered/Resolved]
